FAERS Safety Report 17302159 (Version 1)
Quarter: 2020Q1

REPORT INFORMATION
  Report Type: Spontaneous
  Country: SE (occurrence: SE)
  Receive Date: 20200122
  Receipt Date: 20200122
  Transmission Date: 20200409
  Serious: Yes (Hospitalization)
  Sender: FDA-Public Use
  Company Number: SE-MYLANLABS-2020M1007560

PATIENT
  Age: 23 Year
  Sex: Male

DRUGS (1)
  1. LERGIGAN (PROMETHAZINE) [Suspect]
     Active Substance: PROMETHAZINE HYDROCHLORIDE
     Indication: PRODUCT USED FOR UNKNOWN INDICATION
     Dosage: OKLART HUR STOR DOS SOM INTAGITS, EV. 80-90 ST, 2250 MG.
     Route: 048
     Dates: start: 20181027, end: 20181028

REACTIONS (8)
  - Intentional overdose [Unknown]
  - Restlessness [Unknown]
  - Pyrexia [Unknown]
  - Agitation [Unknown]
  - Depressed level of consciousness [Unknown]
  - Muscle twitching [Unknown]
  - Blood lactic acid increased [Unknown]
  - Intentional self-injury [Unknown]

NARRATIVE: CASE EVENT DATE: 20181028
